FAERS Safety Report 11809759 (Version 1)
Quarter: 2015Q4

REPORT INFORMATION
  Report Type: Report from Study
  Country: JP (occurrence: JP)
  Receive Date: 20151208
  Receipt Date: 20151208
  Transmission Date: 20160305
  Serious: Yes (Other)
  Sender: FDA-Public Use
  Company Number: JP-SHIRE-JP201501021

PATIENT
  Age: 76 Year
  Sex: Male

DRUGS (17)
  1. 422 (ANAGRELIDE) [Suspect]
     Active Substance: ANAGRELIDE
     Dosage: 2.5 MG/DAY, UNKNOWN
     Route: 048
     Dates: start: 20150428, end: 20150526
  2. BAYASPIRIN [Concomitant]
     Active Substance: ASPIRIN
     Indication: THROMBOSIS PROPHYLAXIS
     Dosage: UNK, UNKNOWN
     Route: 048
  3. EPADEL                             /01682401/ [Concomitant]
     Active Substance: ICOSAPENT
     Indication: THROMBOSIS PROPHYLAXIS
     Dosage: UNK, UNKNOWN
     Route: 048
  4. 422 (ANAGRELIDE) [Suspect]
     Active Substance: ANAGRELIDE
     Indication: ESSENTIAL THROMBOCYTHAEMIA
     Dosage: 0.5 MG, 2X/DAY:BID
     Route: 048
     Dates: start: 20150120, end: 20150303
  5. HYDREA [Concomitant]
     Active Substance: HYDROXYUREA
     Dosage: 2000 MG, QOD
     Route: 048
  6. JUVELA                             /00110502/ [Concomitant]
     Indication: THROMBOSIS PROPHYLAXIS
     Dosage: UNK, UNKNOWN
     Route: 048
  7. AZILVA [Concomitant]
     Active Substance: AZILSARTAN KAMEDOXOMIL
     Indication: HYPERTENSION
     Dosage: 20 MG/DAY, UNKNOWN
     Route: 048
  8. 422 (ANAGRELIDE) [Suspect]
     Active Substance: ANAGRELIDE
     Dosage: 2 MG/DAY, UNKNOWN
     Route: 048
     Dates: start: 20150401, end: 20150427
  9. 422 (ANAGRELIDE) [Suspect]
     Active Substance: ANAGRELIDE
     Dosage: 3 MG/DAY, UNKNOWN
     Route: 048
     Dates: start: 20150527, end: 20150707
  10. 422 (ANAGRELIDE) [Suspect]
     Active Substance: ANAGRELIDE
     Dosage: 1.5 MG/DAY, UNKNOWN
     Route: 048
     Dates: start: 20150304, end: 20150331
  11. 422 (ANAGRELIDE) [Suspect]
     Active Substance: ANAGRELIDE
     Dosage: 2.5 MG/DAY, UNKNOWN
     Route: 048
     Dates: start: 20150708
  12. JUZENTAIHOTO                       /07985601/ [Concomitant]
     Indication: DISEASE SUSCEPTIBILITY
     Dosage: UNK, UNKNOWN
     Route: 048
  13. AMLODIPINE                         /00972402/ [Concomitant]
     Active Substance: AMLODIPINE BESYLATE
     Indication: HYPERTENSION
     Dosage: 5 MG/DAY, UNKNOWN
     Route: 048
  14. HYDREA [Concomitant]
     Active Substance: HYDROXYUREA
     Indication: ESSENTIAL THROMBOCYTHAEMIA
     Dosage: 1500 MG, QOD
     Route: 048
  15. KEISHIBUKURYOGAN [Concomitant]
     Active Substance: HERBALS
     Indication: DISEASE SUSCEPTIBILITY
     Dosage: UNK, UNKNOWN
     Route: 048
  16. OMEPRAL                            /00661201/ [Concomitant]
     Active Substance: OMEPRAZOLE
     Indication: PROPHYLAXIS AGAINST GASTROINTESTINAL ULCER
     Dosage: UNK, UNKNOWN
     Route: 048
  17. GOSHAJINKIGAN [Concomitant]
     Active Substance: HERBALS
     Indication: DISEASE SUSCEPTIBILITY
     Dosage: UNK, UNKNOWN
     Route: 048

REACTIONS (4)
  - Putamen haemorrhage [Recovering/Resolving]
  - Palpitations [Recovered/Resolved]
  - Anaemia [Recovering/Resolving]
  - Headache [Recovering/Resolving]

NARRATIVE: CASE EVENT DATE: 20150123
